FAERS Safety Report 18401693 (Version 2)
Quarter: 2020Q4

REPORT INFORMATION
  Report Type: Spontaneous
  Country: IT (occurrence: IT)
  Receive Date: 20201019
  Receipt Date: 20201020
  Transmission Date: 20210114
  Serious: Yes (Disabling)
  Sender: FDA-Public Use
  Company Number: NVSC2020IT277743

PATIENT
  Age: 52 Year
  Sex: Female

DRUGS (8)
  1. OLARATUMAB [Concomitant]
     Active Substance: OLARATUMAB
     Indication: LEIOMYOSARCOMA METASTATIC
     Dosage: UNK
     Route: 042
     Dates: start: 20180509, end: 20181231
  2. TRABECTEDIN [Concomitant]
     Active Substance: TRABECTEDIN
     Indication: LEIOMYOSARCOMA METASTATIC
     Dosage: UNK
     Route: 065
     Dates: start: 20190131, end: 20190524
  3. ZOMETA [Suspect]
     Active Substance: ZOLEDRONIC ACID
     Indication: LEIOMYOSARCOMA METASTATIC
     Dosage: 4 MG (CYCLICAL)
     Route: 042
     Dates: start: 20181009, end: 20200525
  4. PAZOPANIB [Concomitant]
     Active Substance: PAZOPANIB
     Indication: LEIOMYOSARCOMA METASTATIC
     Dosage: UNK
     Route: 065
     Dates: start: 20190624, end: 20200224
  5. CAELYX [Concomitant]
     Active Substance: DOXORUBICIN HYDROCHLORIDE
     Indication: LEIOMYOSARCOMA METASTATIC
     Dosage: UNK
     Route: 042
     Dates: start: 20200326, end: 20200903
  6. DOXORUBICIN HYDROCHLORIDE. [Concomitant]
     Active Substance: DOXORUBICIN HYDROCHLORIDE
     Indication: LEIOMYOSARCOMA METASTATIC
     Dosage: UNK
     Route: 042
     Dates: start: 20180509, end: 20181231
  7. PLAUNAC [Concomitant]
     Active Substance: OLMESARTAN MEDOXOMIL
     Indication: HYPERTENSION
     Dosage: UNK
     Route: 048
  8. SOLDESAM [Concomitant]
     Active Substance: DEXAMETHASONE
     Indication: PRODUCT USED FOR UNKNOWN INDICATION
     Dosage: 60 DRP
     Route: 048
     Dates: start: 20200327, end: 20200908

REACTIONS (2)
  - Sinusitis [Not Recovered/Not Resolved]
  - Osteonecrosis of jaw [Not Recovered/Not Resolved]

NARRATIVE: CASE EVENT DATE: 20200601
